FAERS Safety Report 15598819 (Version 1)
Quarter: 2018Q4

REPORT INFORMATION
  Report Type: Spontaneous
  Country: US (occurrence: US)
  Receive Date: 20181108
  Receipt Date: 20181108
  Transmission Date: 20190205
  Serious: Yes (Hospitalization)
  Sender: FDA-Public Use
  Company Number: None

PATIENT
  Sex: Male

DRUGS (15)
  1. VITAMIN D [Concomitant]
     Active Substance: CHOLECALCIFEROL
  2. FENOFIBRATE. [Concomitant]
     Active Substance: FENOFIBRATE
  3. PHENYTOIN. [Concomitant]
     Active Substance: PHENYTOIN
  4. WELCHOL [Concomitant]
     Active Substance: COLESEVELAM HYDROCHLORIDE
  5. OXYCODONE [Concomitant]
     Active Substance: OXYCODONE
  6. RAMIPRIL. [Concomitant]
     Active Substance: RAMIPRIL
  7. ENBREL [Suspect]
     Active Substance: ETANERCEPT
     Indication: RHEUMATOID ARTHRITIS
     Dosage: ?          OTHER FREQUENCY:EVERY 7 DAYS;?
     Route: 058
     Dates: start: 20170524
  8. CEFUROXIME. [Concomitant]
     Active Substance: CEFUROXIME
  9. NOVOLOG [Concomitant]
     Active Substance: INSULIN ASPART
  10. ESCITALOPRAM [Concomitant]
     Active Substance: ESCITALOPRAM OXALATE
  11. DILAUDID [Concomitant]
     Active Substance: HYDROMORPHONE HYDROCHLORIDE
  12. CYCLOBENZAPR [Concomitant]
     Active Substance: CYCLOBENZAPRINE
  13. ZETIA [Concomitant]
     Active Substance: EZETIMIBE
  14. TOUJEO [Concomitant]
     Active Substance: INSULIN GLARGINE
  15. MAGNESIUM [Concomitant]
     Active Substance: MAGNESIUM

REACTIONS (1)
  - Lower limb fracture [None]
